FAERS Safety Report 5725406-X (Version None)
Quarter: 2008Q2

REPORT INFORMATION
  Report Type: 
  Country: None (occurrence: None)
  Receive Date: 20080501
  Receipt Date: 20080421
  Transmission Date: 20081010
  Serious: Yes (Life-Threatening, Hospitalization, Disabling, Other)
  Sender: FDA-Public Use
  Company Number: GB-PFIZER INC-2008017066

PATIENT
  Sex: Female
  Weight: 50.8 kg

DRUGS (1)
  1. CHAMPIX [Suspect]
     Route: 048

REACTIONS (15)
  - BACK PAIN [None]
  - BLOOD PRESSURE INCREASED [None]
  - CHEST PAIN [None]
  - DYSPHAGIA [None]
  - DYSPNOEA [None]
  - EAR INFECTION [None]
  - FEELING ABNORMAL [None]
  - GASTRIC DISORDER [None]
  - HEADACHE [None]
  - IMPATIENCE [None]
  - LACRIMATION INCREASED [None]
  - MALAISE [None]
  - MOOD SWINGS [None]
  - SUICIDAL IDEATION [None]
  - VISION BLURRED [None]
